FAERS Safety Report 7576955-3 (Version None)
Quarter: 2011Q2

REPORT INFORMATION
  Report Type: 
  Country: None (occurrence: None)
  Receive Date: 20110628
  Receipt Date: 20110620
  Transmission Date: 20111010
  Serious: Yes (Hospitalization)
  Sender: FDA-Public Use
  Company Number: US-AMGEN-USACT2011031482

PATIENT
  Age: 65 Year
  Sex: Female

DRUGS (6)
  1. CYCLOPHOSPHAMIDE [Concomitant]
     Dosage: UNK UNK, Q2WK
     Route: 042
     Dates: start: 20100716
  2. DOXORUBICIN HCL [Concomitant]
     Dosage: 60 MG/M2, Q2WK
     Route: 042
     Dates: start: 20100719
  3. PACLITAXEL [Concomitant]
     Dosage: 80 MG/M2, Q3WK
     Route: 042
  4. PEGFILGRASTIM [Suspect]
     Indication: BREAST CANCER
     Dosage: 6 MG, UNK
     Route: 058
     Dates: start: 20100719
  5. FILGRASTIM [Suspect]
     Indication: BREAST CANCER
     Dosage: 5 A?G, UNK
     Route: 058
     Dates: start: 20100719
  6. BEVACIZUMAB [Concomitant]
     Dosage: UNK UNK, Q2WK
     Route: 042
     Dates: start: 20100719

REACTIONS (2)
  - PLATELET COUNT DECREASED [None]
  - FEBRILE NEUTROPENIA [None]
